FAERS Safety Report 25180498 (Version 1)
Quarter: 2025Q2

REPORT INFORMATION
  Report Type: Spontaneous
  Country: US (occurrence: None)
  Receive Date: 20250409
  Receipt Date: 20250409
  Transmission Date: 20250717
  Serious: No
  Sender: FDA-CTU
  Company Number: None

PATIENT
  Age: 50 Year
  Sex: Female
  Weight: 90.72 kg

DRUGS (7)
  1. SEMAGLUTIDE [Suspect]
     Active Substance: SEMAGLUTIDE
     Indication: Weight decreased
     Dates: start: 20241201, end: 20250314
  2. ZOLOFT [Concomitant]
     Active Substance: SERTRALINE HYDROCHLORIDE
  3. KLONOPIN [Concomitant]
     Active Substance: CLONAZEPAM
  4. VRAYLAR [Concomitant]
     Active Substance: CARIPRAZINE
  5. VITAMIN D 50,000 [Concomitant]
  6. HAIR VITAMIN [Concomitant]
     Active Substance: RETINOL
  7. Olly brand Hair Vitamin [Concomitant]

REACTIONS (11)
  - Product compounding quality issue [None]
  - Product quality issue [None]
  - Product substitution issue [None]
  - Therapeutic response changed [None]
  - Paradoxical drug reaction [None]
  - Weight increased [None]
  - Nausea [None]
  - Gastrointestinal disorder [None]
  - Abdominal pain [None]
  - Constipation [None]
  - Drug ineffective [None]

NARRATIVE: CASE EVENT DATE: 20250314
